FAERS Safety Report 24632363 (Version 4)
Quarter: 2025Q4

REPORT INFORMATION
  Report Type: Report from Study
  Country: CN (occurrence: CN)
  Receive Date: 20241118
  Receipt Date: 20251229
  Transmission Date: 20260117
  Serious: Yes (Hospitalization)
  Sender: AMGEN
  Company Number: CN-AMGEN-CHNNI2024224975

PATIENT
  Age: 59 Year
  Sex: Female
  Weight: 50 kg

DRUGS (15)
  1. DENOSUMAB [Suspect]
     Active Substance: DENOSUMAB
     Indication: Osteoporosis postmenopausal
     Dosage: 60 MILLIGRAM
     Route: 058
     Dates: start: 20231128
  2. LEVOTHYROXINE SODIUM [Concomitant]
     Active Substance: LEVOTHYROXINE SODIUM
     Dosage: 75 MICROGRAM
     Route: 048
     Dates: start: 2012
  3. SODIUM HYALURONATE [Concomitant]
     Active Substance: HYALURONATE SODIUM
     Dosage: DOSE: 1
     Route: 047
     Dates: start: 20231014
  4. Fu ming [Concomitant]
     Dosage: DOSE: 3
     Route: 048
     Dates: start: 20231016
  5. CALCITRIOL [Concomitant]
     Active Substance: CALCITRIOL
     Dosage: 0.25 MICROGRAM
     Route: 048
     Dates: start: 20231128
  6. CALCIUM CARBONATE\CHOLECALCIFEROL [Concomitant]
     Active Substance: CALCIUM CARBONATE\CHOLECALCIFEROL
     Dosage: 0.6 GRAM
     Route: 048
     Dates: start: 20231128
  7. IOPROMIDE [Concomitant]
     Active Substance: IOPROMIDE
     Dosage: 100 MILLILITER
     Route: 040
     Dates: start: 20241101
  8. LEVOFLOXACIN [Concomitant]
     Active Substance: LEVOFLOXACIN
     Dosage: 1 GTT DROPS
     Route: 047
     Dates: start: 20240626, end: 20241113
  9. PRANOPROFEN [Concomitant]
     Active Substance: PRANOPROFEN
     Dosage: 1 GTT DROPS
     Route: 047
     Dates: start: 20240626, end: 20241113
  10. NIFURATEL [Concomitant]
     Active Substance: NIFURATEL
     Dosage: 0.2  GRAM
     Route: 048
     Dates: start: 20241002, end: 202412
  11. CEFIXIME [Concomitant]
     Active Substance: CEFIXIME
     Dosage: DOSE: 1
     Route: 048
     Dates: start: 20241028
  12. LOXOPROFEN SODIUM [Concomitant]
     Active Substance: LOXOPROFEN SODIUM
     Dosage: DOSE: 1
     Route: 047
     Dates: start: 20241028
  13. ESTAZOLAM [Concomitant]
     Active Substance: ESTAZOLAM
     Dosage: 20 MILLIGRAM
     Route: 048
     Dates: start: 20240907
  14. ITOPRIDE HYDROCHLORIDE [Concomitant]
     Active Substance: ITOPRIDE HYDROCHLORIDE
     Dosage: 50 MILLIGRAM
     Route: 048
     Dates: start: 20240907
  15. REBAMIPIDE [Concomitant]
     Active Substance: REBAMIPIDE
     Dosage: 0.1 GRAM
     Route: 048
     Dates: start: 20240907

REACTIONS (1)
  - Arteriosclerosis coronary artery [Recovered/Resolved]

NARRATIVE: CASE EVENT DATE: 20241104
